FAERS Safety Report 4905283-7 (Version None)
Quarter: 2006Q1

REPORT INFORMATION
  Report Type: 
  Country: None (occurrence: None)
  Receive Date: 20060207
  Receipt Date: 20060207
  Transmission Date: 20060701
  Serious: Yes (Other)
  Sender: FDA-Public Use
  Company Number: None

PATIENT
  Age: 66 Year
  Sex: Female
  Weight: 68.5 kg

DRUGS (1)
  1. VASOTEC [Suspect]
     Indication: HYPERTENSION
     Dosage: 2.5 MG  Q6HRS   IV BOLUS;  2.5 MG  Q4HRS PRN  IV BOLUS
     Route: 040
     Dates: start: 20051012, end: 20051013

REACTIONS (1)
  - ANGIONEUROTIC OEDEMA [None]
